FAERS Safety Report 5553941-6 (Version None)
Quarter: 2007Q4

REPORT INFORMATION
  Report Type: 
  Country: None (occurrence: None)
  Receive Date: 20071213
  Receipt Date: 20071128
  Transmission Date: 20080405
  Serious: Yes (Death)
  Sender: FDA-Public Use
  Company Number: US-ELI_LILLY_AND_COMPANY-US200712000941

PATIENT
  Sex: Male

DRUGS (5)
  1. CIALIS [Suspect]
     Indication: ERECTILE DYSFUNCTION
     Dosage: 20 MG, UNK
     Route: 048
     Dates: start: 20070131, end: 20071019
  2. ASPIRIN [Concomitant]
     Dosage: 81 MG, DAILY (1/D)
     Route: 048
  3. ATENOLOL [Concomitant]
     Dosage: 25 MG, DAILY (1/D)
     Route: 048
  4. PRAVACHOL [Concomitant]
     Dosage: 40 MG, DAILY (1/D)
     Route: 048
  5. ENALAPRIL [Concomitant]
     Dosage: 5 MG, DAILY (1/D)
     Route: 048

REACTIONS (1)
  - MYOCARDIAL INFARCTION [None]
